FAERS Safety Report 16966600 (Version 2)
Quarter: 2019Q4

REPORT INFORMATION
  Report Type: Spontaneous
  Country: US (occurrence: US)
  Receive Date: 20191028
  Receipt Date: 20191106
  Transmission Date: 20200122
  Serious: Yes (Hospitalization, Other)
  Sender: FDA-Public Use
  Company Number: US-AMNEAL PHARMACEUTICALS-2019-AMRX-02185

PATIENT
  Age: 76 Year
  Sex: Female

DRUGS (1)
  1. BOSENTAN. [Suspect]
     Active Substance: BOSENTAN
     Indication: PULMONARY ARTERIAL HYPERTENSION
     Dosage: 125 MILLIGRAM, 2 /DAY
     Route: 065
     Dates: start: 2019

REACTIONS (3)
  - Haemoglobin decreased [Recovered/Resolved]
  - Atrial fibrillation [Recovered/Resolved]
  - Malaise [Recovered/Resolved]

NARRATIVE: CASE EVENT DATE: 20190228
